FAERS Safety Report 14542182 (Version 1)
Quarter: 2018Q1

REPORT INFORMATION
  Report Type: Spontaneous
  Country: US (occurrence: US)
  Receive Date: 20180216
  Receipt Date: 20180216
  Transmission Date: 20180509
  Serious: Yes (Death, Hospitalization, Other)
  Sender: FDA-Public Use
  Company Number: US-OTSUKA-DJ201301455

PATIENT
  Age: 74 Year
  Sex: Female

DRUGS (2)
  1. ABILIFY [Suspect]
     Active Substance: ARIPIPRAZOLE
     Indication: PRODUCT USED FOR UNKNOWN INDICATION
     Dosage: UNK
     Route: 065
     Dates: end: 2008
  2. SEROQUEL [Suspect]
     Active Substance: QUETIAPINE FUMARATE
     Indication: PRODUCT USED FOR UNKNOWN INDICATION
     Dosage: UNK
     Route: 065
     Dates: end: 2008

REACTIONS (23)
  - Asthma [Fatal]
  - Diabetes mellitus [Fatal]
  - Haemorrhage [Unknown]
  - Pneumonia [Unknown]
  - Myocardial infarction [Unknown]
  - Arteriosclerosis [Fatal]
  - Cardiomegaly [Unknown]
  - Death [Fatal]
  - Hyperlipidaemia [Fatal]
  - Ischaemic cardiomyopathy [Fatal]
  - White blood cell count decreased [Unknown]
  - Motor dysfunction [Fatal]
  - Tardive dyskinesia [Fatal]
  - Neuroleptic malignant syndrome [Unknown]
  - Nervous system disorder [Unknown]
  - Osteoarthritis [Fatal]
  - Cerebrovascular accident [Unknown]
  - Food poisoning [Fatal]
  - Seizure [Fatal]
  - Chronic kidney disease [Fatal]
  - Respiratory tract infection [Unknown]
  - Coma [Unknown]
  - End stage renal disease [Unknown]

NARRATIVE: CASE EVENT DATE: 20080408
